FAERS Safety Report 5486168-7 (Version None)
Quarter: 2007Q4

REPORT INFORMATION
  Report Type: 
  Country: None (occurrence: None)
  Receive Date: 20071012
  Receipt Date: 20070907
  Transmission Date: 20080405
  Serious: Yes (Hospitalization, Other)
  Sender: FDA-Public Use
  Company Number: STI-2007-01531

PATIENT
  Age: 55 Year
  Sex: Female

DRUGS (2)
  1. BETAMETHASONE [Suspect]
     Indication: PRURITUS ANI
     Dosage: INGUINAL, ANAL, FACE
  2. ANTI-FUNGALS (ANTIFUNGALS) [Suspect]
     Indication: PRURITUS ANI

REACTIONS (9)
  - BREAST CANCER FEMALE [None]
  - BURNING SENSATION [None]
  - CONDITION AGGRAVATED [None]
  - DRUG DEPENDENCE [None]
  - DRUG WITHDRAWAL SYNDROME [None]
  - PERIANAL ERYTHEMA [None]
  - PRURITUS [None]
  - PRURITUS ANI [None]
  - SKIN ATROPHY [None]
